FAERS Safety Report 5524440-2 (Version None)
Quarter: 2007Q4

REPORT INFORMATION
  Report Type: 
  Country: None (occurrence: None)
  Receive Date: 20071122
  Receipt Date: 20071114
  Transmission Date: 20080405
  Serious: Yes (Other)
  Sender: FDA-Public Use
  Company Number: US-JNJFOC-20071106429

PATIENT
  Sex: Male
  Weight: 113.4 kg

DRUGS (7)
  1. DURAGESIC-100 [Suspect]
     Indication: PAIN
     Route: 062
  2. FLEXERIL [Suspect]
     Indication: MUSCLE SPASMS
     Route: 048
  3. FLEXERIL [Suspect]
     Route: 048
  4. VISTARIL [Concomitant]
     Indication: PANIC ATTACK
     Route: 048
  5. GABAPENTIN [Concomitant]
     Indication: NEURALGIA
     Dosage: 300MG X 2
     Route: 048
  6. KLONAPIN [Concomitant]
     Indication: PANIC ATTACK
     Route: 048
  7. NORTRIPTYLINE HCL [Concomitant]
     Indication: SLEEP DISORDER
     Dosage: 2X 75MG AT BEDTIME
     Route: 048

REACTIONS (6)
  - CONSTIPATION [None]
  - HYPERTENSION [None]
  - INAPPROPRIATE SCHEDULE OF DRUG ADMINISTRATION [None]
  - MUSCLE SPASMS [None]
  - NIGHT SWEATS [None]
  - WRONG TECHNIQUE IN DRUG USAGE PROCESS [None]
